FAERS Safety Report 7149552-1 (Version None)
Quarter: 2010Q4

REPORT INFORMATION
  Report Type: 
  Country: None (occurrence: None)
  Receive Date: 20101209
  Receipt Date: 20101201
  Transmission Date: 20110411
  Serious: Yes (Other)
  Sender: FDA-Public Use
  Company Number: IN-ALLERGAN-1015736US

PATIENT
  Age: 76 Year
  Sex: Male

DRUGS (3)
  1. TIMOLOL UNK [Suspect]
     Indication: OPEN ANGLE GLAUCOMA
     Dosage: 1 GTT, BID
  2. DORZOLAMIDE [Suspect]
     Indication: GLAUCOMA
  3. ATENOLOL [Concomitant]
     Indication: HYPERTENSION
     Dosage: 25 MG, QD
     Route: 048

REACTIONS (2)
  - CHOROIDAL DETACHMENT [None]
  - DRUG INEFFECTIVE [None]
